FAERS Safety Report 13054310 (Version 1)
Quarter: 2016Q4

REPORT INFORMATION
  Report Type: Other
  Country: US (occurrence: US)
  Receive Date: 20161222
  Receipt Date: 20161222
  Transmission Date: 20170207
  Serious: Yes (Life-Threatening)
  Sender: FDA-Public Use
  Company Number: US-NEXGEN PHARMA, INC.-1061158

PATIENT
  Sex: Male

DRUGS (1)
  1. CHENODIOL TABLETS 250 MG [Suspect]
     Active Substance: CHENODIOL
     Indication: XANTHOMATOSIS
     Route: 048
     Dates: start: 20160731

REACTIONS (1)
  - Hospice care [Not Recovered/Not Resolved]
